FAERS Safety Report 24866999 (Version 2)
Quarter: 2025Q2

REPORT INFORMATION
  Report Type: Spontaneous
  Country: US (occurrence: US)
  Receive Date: 20250121
  Receipt Date: 20250417
  Transmission Date: 20250716
  Serious: Yes (Hospitalization, Other)
  Sender: BRISTOL MYERS SQUIBB
  Company Number: US-BRISTOL-MYERS SQUIBB COMPANY-2025-005898

PATIENT
  Age: 45 Year
  Sex: Male

DRUGS (10)
  1. IPILIMUMAB [Suspect]
     Active Substance: IPILIMUMAB
     Indication: Alveolar soft part sarcoma metastatic
     Dosage: EVERY 4 WEEKS
     Dates: start: 202408, end: 202410
  2. IPILIMUMAB [Suspect]
     Active Substance: IPILIMUMAB
     Dosage: EVERY 4 WEEKS
     Dates: start: 202411, end: 20241204
  3. NIVOLUMAB [Suspect]
     Active Substance: NIVOLUMAB
     Indication: Alveolar soft part sarcoma metastatic
     Dosage: EVERY 3 WEEKS FOR FOUR CYCLES
     Dates: start: 202408, end: 202410
  4. CABOMETYX [Suspect]
     Active Substance: CABOZANTINIB S-MALATE
     Indication: Alveolar soft part sarcoma metastatic
     Route: 048
     Dates: start: 202406
  5. CABOMETYX [Suspect]
     Active Substance: CABOZANTINIB S-MALATE
     Route: 048
     Dates: start: 202408, end: 202410
  6. CABOMETYX [Suspect]
     Active Substance: CABOZANTINIB S-MALATE
     Route: 048
     Dates: start: 202411, end: 20241204
  7. PEMBROLIZUMAB [Suspect]
     Active Substance: PEMBROLIZUMAB
     Indication: Alveolar soft part sarcoma metastatic
     Dosage: EVERY 3 WEEKS
     Dates: start: 202309, end: 202404
  8. PEMBROLIZUMAB [Suspect]
     Active Substance: PEMBROLIZUMAB
     Dosage: EVERY 3 WEEKS
     Dates: start: 202407, end: 202408
  9. SUNITINIB MALATE [Suspect]
     Active Substance: SUNITINIB MALATE
     Indication: Alveolar soft part sarcoma metastatic
     Dates: start: 202309, end: 202404
  10. SUNITINIB MALATE [Suspect]
     Active Substance: SUNITINIB MALATE
     Dates: start: 202407, end: 202408

REACTIONS (11)
  - Oxygen saturation decreased [Not Recovered/Not Resolved]
  - Dyspnoea [Not Recovered/Not Resolved]
  - Cough [Not Recovered/Not Resolved]
  - Post procedural complication [Unknown]
  - Hepatotoxicity [Unknown]
  - Malignant neoplasm progression [Unknown]
  - Aspartate aminotransferase increased [Unknown]
  - Alanine aminotransferase increased [Unknown]
  - Blood thyroid stimulating hormone increased [Unknown]
  - Aphonia [Unknown]
  - Off label use [Unknown]

NARRATIVE: CASE EVENT DATE: 20240801
